FAERS Safety Report 21445043 (Version 3)
Quarter: 2022Q4

REPORT INFORMATION
  Report Type: Spontaneous
  Country: JP (occurrence: JP)
  Receive Date: 20221012
  Receipt Date: 20221208
  Transmission Date: 20230113
  Serious: Yes (Hospitalization)
  Sender: FDA-Public Use
  Company Number: JP-JNJFOC-20221021293

PATIENT
  Age: 78 Year
  Sex: Female
  Weight: 54.8 kg

DRUGS (36)
  1. SIMPONI [Suspect]
     Active Substance: GOLIMUMAB
     Indication: Rheumatoid arthritis
     Dosage: 1 DAY DURATION
     Route: 058
     Dates: start: 20220818, end: 20220818
  2. BRENSOCATIB [Suspect]
     Active Substance: BRENSOCATIB
     Indication: Bronchiectasis
     Dosage: 10 MG OR 25 MG OR PLACEBO, LAST ADMINISTRATION ON 18-AUG-2022
     Dates: start: 20220407
  3. BRENSOCATIB [Suspect]
     Active Substance: BRENSOCATIB
     Dosage: 10 MG OR 25 MG OR PLACEBO
     Dates: start: 20220407
  4. BRENSOCATIB [Suspect]
     Active Substance: BRENSOCATIB
     Dosage: 10 MG OR 25 MG OR PLACEBO
     Dates: start: 20220407
  5. BRENSOCATIB [Suspect]
     Active Substance: BRENSOCATIB
     Dosage: 10 MG OR 25 MG OR PLACEBO
     Dates: start: 20220407
  6. BRENSOCATIB [Suspect]
     Active Substance: BRENSOCATIB
     Dosage: 10 MG OR 25 MG OR PLACEBO
     Dates: start: 20220407
  7. BRENSOCATIB [Suspect]
     Active Substance: BRENSOCATIB
     Dosage: 10 MG OR 25 MG OR PLACEBO, DURATION: 4 MONTHS, 12 DAYS
     Dates: start: 20220407
  8. BRENSOCATIB [Suspect]
     Active Substance: BRENSOCATIB
     Dosage: 10 MG OR 25 MG OR PLACEBO
     Dates: start: 20220407
  9. PREDONINE [Suspect]
     Active Substance: PREDNISOLONE
     Indication: Rheumatoid arthritis
     Route: 048
     Dates: start: 20220617, end: 20220817
  10. PREDONINE [Suspect]
     Active Substance: PREDNISOLONE
     Route: 048
     Dates: start: 20220617, end: 20221010
  11. PREDONINE [Suspect]
     Active Substance: PREDNISOLONE
     Route: 048
     Dates: start: 20221011
  12. CLARITHROMYCIN [Concomitant]
     Active Substance: CLARITHROMYCIN
     Indication: Bronchiectasis
  13. SPIRIVA RESPIMAT [Concomitant]
     Active Substance: TIOTROPIUM BROMIDE
     Indication: Bronchiectasis
     Dates: start: 20160316
  14. FLUOROMETHOLONE [Concomitant]
     Active Substance: FLUOROMETHOLONE
     Indication: Conjunctivitis
     Dosage: SUSPENSION/ DROPS
     Dates: start: 20220325
  15. MAGNESIUM OXIDE [Concomitant]
     Active Substance: MAGNESIUM OXIDE
     Indication: Constipation
  16. BIOFERMIN [BACILLUS SUBTILIS;ENTEROCOCCUS FAECALIS;LACTOBACILLUS ACIDO [Concomitant]
     Indication: Constipation
  17. FEXOFENADINE HYDROCHLORIDE [Concomitant]
     Active Substance: FEXOFENADINE HYDROCHLORIDE
     Indication: Pruritus
     Dates: start: 20220405
  18. DIPHENHYDRAMINE [Concomitant]
     Active Substance: DIPHENHYDRAMINE
     Indication: Pruritus
     Dosage: 1 % CREAM
     Dates: start: 20220506
  19. LULICONAZOLE [Concomitant]
     Active Substance: LULICONAZOLE
     Indication: Pruritus
     Dosage: 1 % CREAM
     Dates: start: 20220506
  20. LANSOPRAZOLE [Concomitant]
     Active Substance: LANSOPRAZOLE
     Indication: Gastritis
     Dates: start: 20220520
  21. MINODRONIC ACID [Concomitant]
     Active Substance: MINODRONIC ACID
     Indication: Osteoporosis
     Dates: start: 20220605
  22. RHEUMATREX [Concomitant]
     Active Substance: METHOTREXATE SODIUM
     Indication: Rheumatoid arthritis
     Dates: start: 20220603, end: 20220909
  23. LOXOPROFEN [Concomitant]
     Active Substance: LOXOPROFEN
     Indication: Rheumatoid arthritis
     Dates: start: 20220721, end: 20220817
  24. LOXOPROFEN [Concomitant]
     Active Substance: LOXOPROFEN
     Dates: start: 20220818, end: 20221005
  25. LOXOPROFEN SODIUM DIHYDRATE [Concomitant]
     Active Substance: LOXOPROFEN SODIUM DIHYDRATE
     Indication: Rheumatoid arthritis
     Dates: start: 20220721
  26. LULICONAZOLE [Concomitant]
     Active Substance: LULICONAZOLE
     Dosage: 1%
     Dates: start: 20220506
  27. DIETARY SUPPLEMENT\PROBIOTICS [Concomitant]
     Active Substance: DIETARY SUPPLEMENT\PROBIOTICS
     Route: 048
     Dates: start: 20220925
  28. MAGNESIUM OXIDE [Concomitant]
     Active Substance: MAGNESIUM OXIDE
     Dates: start: 20220926
  29. SODIUM GUALENATE MONOHYDRATE [Concomitant]
     Active Substance: SODIUM GUALENATE MONOHYDRATE
     Dosage: 4%
     Dates: start: 20220928
  30. GUAIAZULENE [Concomitant]
     Active Substance: GUAIAZULENE
     Dosage: 0.033%
     Dates: start: 20220928
  31. SOLU-MEDROL [Concomitant]
     Active Substance: METHYLPREDNISOLONE SODIUM SUCCINATE
     Dates: start: 20221003, end: 20221005
  32. SOLU-MEDROL [Concomitant]
     Active Substance: METHYLPREDNISOLONE SODIUM SUCCINATE
     Dates: start: 20221006
  33. VANCOMYCIN HYDROCHLORIDE [Concomitant]
     Active Substance: VANCOMYCIN HYDROCHLORIDE
     Dates: start: 20220930
  34. VONOPRAZAN FUMARATE [Concomitant]
     Active Substance: VONOPRAZAN FUMARATE
     Dates: start: 20221011
  35. FUNGIZONE [Concomitant]
     Active Substance: AMPHOTERICIN B
     Route: 048
     Dates: start: 20220930
  36. LUNESTA [Concomitant]
     Active Substance: ESZOPICLONE
     Dates: start: 20221013

REACTIONS (1)
  - Pneumonia [Recovered/Resolved]

NARRATIVE: CASE EVENT DATE: 20220912
